FAERS Safety Report 16586328 (Version 1)
Quarter: 2019Q3

REPORT INFORMATION
  Report Type: Spontaneous
  Country: DE (occurrence: DE)
  Receive Date: 20190717
  Receipt Date: 20190717
  Transmission Date: 20191004
  Serious: Yes (Hospitalization)
  Sender: FDA-Public Use
  Company Number: DE-TEVA-2019-DE-1077456

PATIENT
  Age: 78 Year
  Sex: Male
  Weight: 164 kg

DRUGS (7)
  1. LERCANIDIPIN [Suspect]
     Active Substance: LERCANIDIPINE
     Dosage: 10 MG, 1-0-0; SINCE 10.11.2017, TABLETS
     Route: 048
  2. TELMISARTAN/HYDROCHLOROTHIAZID [Concomitant]
     Active Substance: HYDROCHLOROTHIAZIDE\TELMISARTAN
     Dosage: 80|12.5 MG, 1-0-0, TABLET
     Route: 048
  3. RIVAROXABAN [Concomitant]
     Active Substance: RIVAROXABAN
     Dosage: 20 MG, 1-0-0, TABLET
     Route: 048
  4. BISOPROLOL [Concomitant]
     Active Substance: BISOPROLOL
     Dosage: 5 MG, 1/2-0-1/2, TABLET
     Route: 048
  5. AMLODIPIN [Concomitant]
     Active Substance: AMLODIPINE BESYLATE
     Dosage: 5 MG, 1-0-1, TABLET
     Route: 048
  6. ALLOPURINOL. [Concomitant]
     Active Substance: ALLOPURINOL
     Dosage: 300 MG, 1-0-0, TABLET
     Route: 048
  7. TORASEMID [Suspect]
     Active Substance: TORSEMIDE
     Dosage: 10 MG, 1-0-0; SINCE 10.11.2017, TABLETS
     Route: 048

REACTIONS (4)
  - Hypotension [Unknown]
  - Product prescribing error [Unknown]
  - Atrial fibrillation [Unknown]
  - Syncope [Unknown]
